FAERS Safety Report 22643961 (Version 1)
Quarter: 2023Q2

REPORT INFORMATION
  Report Type: Spontaneous
  Country: PL (occurrence: PL)
  Receive Date: 20230627
  Receipt Date: 20230627
  Transmission Date: 20230721
  Serious: Yes (Hospitalization, Other)
  Sender: FDA-Public Use
  Company Number: PL-ASTELLAS-2023US019095

PATIENT
  Age: 59 Year
  Sex: Female

DRUGS (2)
  1. GILTERITINIB [Suspect]
     Active Substance: GILTERITINIB
     Indication: Product used for unknown indication
     Route: 065
     Dates: start: 20230321
  2. GILTERITINIB [Suspect]
     Active Substance: GILTERITINIB
     Dosage: UNK UNK, UNKNOWN FREQ. (REDUCED DOSE)
     Route: 065

REACTIONS (4)
  - Haematotoxicity [Unknown]
  - Pancytopenia [Unknown]
  - Hepatotoxicity [Unknown]
  - Blood creatine phosphokinase increased [Unknown]
